FAERS Safety Report 26149634 (Version 1)
Quarter: 2025Q4

REPORT INFORMATION
  Report Type: Spontaneous
  Country: US (occurrence: None)
  Receive Date: 20251211
  Receipt Date: 20251211
  Transmission Date: 20260117
  Serious: No
  Sender: FDA-CTU
  Company Number: None

PATIENT
  Sex: Female

DRUGS (5)
  1. DEVICE [Suspect]
     Active Substance: DEVICE
     Indication: Hypogammaglobulinaemia
     Dosage: OTHER FREQUENCY : EVERY 2 WEEKS;
     Route: 058
     Dates: start: 20251201
  2. DEVICE [Suspect]
     Active Substance: DEVICE
     Indication: Immunodeficiency common variable
  3. EPINEPHRINE AUTO-INJ [Concomitant]
  4. PUMP FREEDOM 60 [Concomitant]
  5. HIZENTRA [Suspect]
     Active Substance: HUMAN IMMUNOGLOBULIN G

REACTIONS (2)
  - Infusion site haematoma [None]
  - Needle issue [None]
